FAERS Safety Report 9272382 (Version 1)
Quarter: 2013Q2

REPORT INFORMATION
  Report Type: Spontaneous
  Country: GB (occurrence: GB)
  Receive Date: 20130506
  Receipt Date: 20130506
  Transmission Date: 20140414
  Serious: Yes (Other)
  Sender: FDA-Public Use
  Company Number: GB-TEVA-402318ISR

PATIENT
  Age: 26 Year
  Sex: Male
  Weight: 80 kg

DRUGS (5)
  1. CIPROFLOXACIN [Suspect]
     Dates: start: 20130416
  2. FLUOXETINE [Concomitant]
     Dates: start: 20130403, end: 20130418
  3. DOXYCYCLINE [Concomitant]
     Dates: start: 20130415
  4. IBUPROFEN [Concomitant]
     Dates: start: 20130416, end: 20130417
  5. PARACETAMOL [Concomitant]
     Dates: start: 20130416, end: 20130417

REACTIONS (3)
  - Swelling face [Recovering/Resolving]
  - Ocular hyperaemia [Recovering/Resolving]
  - Hypersensitivity [Recovering/Resolving]
